FAERS Safety Report 5239181-9 (Version None)
Quarter: 2007Q1

REPORT INFORMATION
  Report Type: 
  Country: None (occurrence: None)
  Receive Date: 20070212
  Receipt Date: 20070126
  Transmission Date: 20070707
  Serious: Yes (Death, Hospitalization)
  Sender: FDA-Public Use
  Company Number: S07-GER-00223-01

PATIENT
  Age: 67 Year
  Sex: Male

DRUGS (5)
  1. CITALOPRAM HYDROBROMIDE [Suspect]
     Indication: DEPRESSION
     Dosage: 10 MG QD PO
     Route: 048
     Dates: start: 20060609, end: 20060723
  2. HEPARIN [Suspect]
     Dosage: 5000 IU TID SC
     Route: 058
     Dates: start: 20060709, end: 20060721
  3. HEPARIN [Suspect]
     Dosage: 5000 IU QD SC
     Route: 058
     Dates: start: 20060722, end: 20060817
  4. HEPARIN [Suspect]
     Dosage: 5000 IU TID SC
     Route: 058
     Dates: end: 20060629
  5. HEPARIN [Suspect]
     Dosage: 5000 IU QD SC
     Route: 058
     Dates: start: 20060630, end: 20060708

REACTIONS (4)
  - MULTI-ORGAN FAILURE [None]
  - PETECHIAE [None]
  - PLATELET FUNCTION TEST ABNORMAL [None]
  - SEPSIS [None]
